FAERS Safety Report 16174456 (Version 2)
Quarter: 2019Q2

REPORT INFORMATION
  Report Type: Report from Study
  Country: AU (occurrence: AU)
  Receive Date: 20190409
  Receipt Date: 20190416
  Transmission Date: 20190711
  Serious: Yes (Death)
  Sender: FDA-Public Use
  Company Number: PHHY2019AU080736

PATIENT
  Sex: Male

DRUGS (1)
  1. SANDOSTATIN LAR DEPOT [Suspect]
     Active Substance: OCTREOTIDE ACETATE
     Indication: NEUROENDOCRINE TUMOUR
     Dosage: 30 MG, Q3W
     Route: 030

REACTIONS (3)
  - Malignant neoplasm progression [Fatal]
  - Neuroendocrine tumour [Fatal]
  - Inappropriate schedule of product administration [Unknown]
